FAERS Safety Report 8840639 (Version 2)
Quarter: 2012Q4

REPORT INFORMATION
  Report Type: 
  Country: US (occurrence: US)
  Receive Date: 20121015
  Receipt Date: 20121203
  Transmission Date: 20130627
  Serious: Yes (Other)
  Sender: FDA-Public Use
  Company Number: US-PFIZER INC-2012255066

PATIENT
  Age: 63 Year
  Sex: Male
  Weight: 179 kg

DRUGS (3)
  1. LYRICA [Suspect]
     Indication: DIABETES
     Dosage: 150 mg, 2x/day
  2. LYRICA [Suspect]
     Indication: NEUROPATHY
  3. CELEBREX [Concomitant]
     Indication: FIBROMYALGIA
     Dosage: 150 mg, 2x/day

REACTIONS (7)
  - Joint injury [Unknown]
  - Nausea [Unknown]
  - Diarrhoea [Unknown]
  - Eructation [Unknown]
  - Viral infection [Unknown]
  - Vomiting [Unknown]
  - Nasopharyngitis [Unknown]
